FAERS Safety Report 22113441 (Version 1)
Quarter: 2023Q1

REPORT INFORMATION
  Report Type: Spontaneous
  Country: CA (occurrence: CA)
  Receive Date: 20230320
  Receipt Date: 20230320
  Transmission Date: 20230417
  Serious: Yes (Other)
  Sender: FDA-Public Use
  Company Number: CA-JNJFOC-20230339572

PATIENT
  Age: 18 Year
  Sex: Female
  Weight: 54 kg

DRUGS (7)
  1. REMICADE [Suspect]
     Active Substance: INFLIXIMAB
     Indication: Crohn^s disease
     Route: 041
  2. INFLIXIMAB [Suspect]
     Active Substance: INFLIXIMAB
     Indication: Crohn^s disease
     Route: 042
  3. INFLIXIMAB [Suspect]
     Active Substance: INFLIXIMAB
     Route: 042
  4. INFLIXIMAB [Suspect]
     Active Substance: INFLIXIMAB
     Route: 042
  5. INFLIXIMAB [Suspect]
     Active Substance: INFLIXIMAB
     Route: 042
  6. LEUCOVORIN [Concomitant]
     Active Substance: LEUCOVORIN
     Route: 048
  7. METHOTREXATE [Concomitant]
     Active Substance: METHOTREXATE
     Route: 048

REACTIONS (13)
  - Haematochezia [Not Recovered/Not Resolved]
  - Mucous stools [Not Recovered/Not Resolved]
  - Tooth disorder [Not Recovered/Not Resolved]
  - Abdominal discomfort [Not Recovered/Not Resolved]
  - Abdominal pain [Not Recovered/Not Resolved]
  - Bowel movement irregularity [Not Recovered/Not Resolved]
  - Condition aggravated [Not Recovered/Not Resolved]
  - Constipation [Not Recovered/Not Resolved]
  - Faeces hard [Not Recovered/Not Resolved]
  - Fatigue [Not Recovered/Not Resolved]
  - Inappropriate schedule of product administration [Not Recovered/Not Resolved]
  - Intentional product use issue [Not Recovered/Not Resolved]
  - Off label use [Not Recovered/Not Resolved]
